FAERS Safety Report 20559494 (Version 2)
Quarter: 2022Q1

REPORT INFORMATION
  Report Type: Spontaneous
  Country: US (occurrence: US)
  Receive Date: 20220307
  Receipt Date: 20220321
  Transmission Date: 20220424
  Serious: Yes (Hospitalization, Other)
  Sender: FDA-Public Use
  Company Number: US-Calliditas-2022CAL00007

PATIENT
  Age: 73 Year
  Sex: Male

DRUGS (1)
  1. TARPEYO [Suspect]
     Active Substance: BUDESONIDE
     Indication: Glomerulonephritis chronic
     Dosage: 16 MG ONCE DAILY
     Route: 050
     Dates: start: 20220211

REACTIONS (4)
  - Nephrolithiasis [Unknown]
  - Cholecystectomy [Unknown]
  - Pain [Unknown]
  - Discomfort [Unknown]

NARRATIVE: CASE EVENT DATE: 20220211
